FAERS Safety Report 4489237-3 (Version None)
Quarter: 2004Q4

REPORT INFORMATION
  Report Type: 
  Country: None (occurrence: None)
  Receive Date: 20041029
  Receipt Date: 20030605
  Transmission Date: 20050328
  Serious: Yes (Hospitalization, Disabling)
  Sender: FDA-Public Use
  Company Number: US-MERCK-0306USA00784

PATIENT
  Age: 69 Year
  Sex: Female

DRUGS (7)
  1. VIOXX [Suspect]
     Indication: ARTHRITIS
     Route: 048
     Dates: start: 20000601, end: 20010101
  2. VIOXX [Suspect]
     Route: 048
     Dates: start: 20020520
  3. NORVASC [Concomitant]
     Route: 065
  4. HYDROCHLOROTHIAZIDE [Concomitant]
     Route: 065
  5. DIOVAN [Concomitant]
     Route: 065
  6. PRAVACHOL [Concomitant]
     Route: 065
  7. GEMFIBROZIL [Concomitant]
     Route: 065

REACTIONS (32)
  - ACTIVATED PARTIAL THROMBOPLASTIN TIME PROLONGED [None]
  - ADVERSE DRUG REACTION [None]
  - ADVERSE EVENT [None]
  - ARTHRALGIA [None]
  - ASTHENIA [None]
  - AZOTAEMIA [None]
  - BACK PAIN [None]
  - BREAST MASS [None]
  - DEHYDRATION [None]
  - DIABETES MELLITUS [None]
  - DIVERTICULUM [None]
  - DYSKINESIA [None]
  - DYSLIPIDAEMIA [None]
  - DYSURIA [None]
  - ECZEMA [None]
  - FATIGUE [None]
  - HEPATITIS [None]
  - HERPES ZOSTER [None]
  - INFLUENZA [None]
  - INTERNATIONAL NORMALISED RATIO INCREASED [None]
  - MYALGIA [None]
  - OEDEMA PERIPHERAL [None]
  - POLLAKIURIA [None]
  - PROTHROMBIN TIME PROLONGED [None]
  - PYREXIA [None]
  - RADICULOPATHY [None]
  - RECTAL HAEMORRHAGE [None]
  - RHABDOMYOLYSIS [None]
  - SEBORRHOEIC KERATOSIS [None]
  - SPONDYLOLISTHESIS ACQUIRED [None]
  - VOMITING [None]
  - WEIGHT DECREASED [None]
